FAERS Safety Report 23924669 (Version 2)
Quarter: 2024Q2

REPORT INFORMATION
  Report Type: Spontaneous
  Country: US (occurrence: US)
  Receive Date: 20240531
  Receipt Date: 20240531
  Transmission Date: 20240715
  Serious: No
  Sender: FDA-Public Use
  Company Number: US-JUBILANT RADIOPHARMA-2024US000205

PATIENT
  Sex: Female
  Weight: 63.492 kg

DRUGS (2)
  1. TECHNETIUM TC-99M SULFUR COLLOID KIT [Suspect]
     Active Substance: TECHNETIUM TC-99M SULFUR COLLOID
     Indication: Lymphatic mapping
     Dosage: 0.5 MCI
     Route: 042
     Dates: start: 20240404, end: 20240404
  2. FASLODEX [Concomitant]
     Active Substance: FULVESTRANT
     Indication: Chemotherapy
     Dosage: UNK

REACTIONS (2)
  - Drug ineffective [Recovered/Resolved]
  - Radioisotope uptake increased [Recovered/Resolved]

NARRATIVE: CASE EVENT DATE: 20240404
